FAERS Safety Report 18180708 (Version 2)
Quarter: 2020Q3

REPORT INFORMATION
  Report Type: Spontaneous
  Country: US (occurrence: US)
  Receive Date: 20200821
  Receipt Date: 20200909
  Transmission Date: 20201103
  Serious: No
  Sender: FDA-Public Use
  Company Number: US-BAYER-2020-174558

PATIENT
  Age: 35 Year
  Sex: Female

DRUGS (1)
  1. KYLEENA [Suspect]
     Active Substance: LEVONORGESTREL
     Indication: CONTRACEPTION
     Dosage: 17.5 ?G PER DAY,  CONTINUOUSLY
     Route: 015
     Dates: start: 20200410, end: 20200813

REACTIONS (2)
  - Vaginal haemorrhage [None]
  - Device malfunction [None]

NARRATIVE: CASE EVENT DATE: 20200806
